FAERS Safety Report 18159424 (Version 4)
Quarter: 2020Q4

REPORT INFORMATION
  Report Type: Spontaneous
  Country: CZ (occurrence: CZ)
  Receive Date: 20200817
  Receipt Date: 20201103
  Transmission Date: 20210113
  Serious: Yes (Other)
  Sender: FDA-Public Use
  Company Number: CZ-ELI_LILLY_AND_COMPANY-CZ202008001713

PATIENT
  Age: 72 Year
  Sex: Female

DRUGS (3)
  1. PEMETREXED. [Suspect]
     Active Substance: PEMETREXED
     Indication: NON-SMALL CELL LUNG CANCER
     Dosage: 500 MG/M2 CYCLIC, WITH DOSE REDUCTION BY 20 PERCENT
     Route: 065
     Dates: start: 201610, end: 201802
  2. CARBOPLATIN. [Suspect]
     Active Substance: CARBOPLATIN
     Indication: NON-SMALL CELL LUNG CANCER
     Dosage: REDUCED BY 30%, CYCLICAL
     Route: 065
     Dates: start: 201512
  3. GEMCITABINE HYDROCHLORIDE. [Suspect]
     Active Substance: GEMCITABINE HYDROCHLORIDE
     Indication: NON-SMALL CELL LUNG CANCER
     Dosage: REDUCED BY 30%, CYCLICAL
     Route: 065
     Dates: start: 201512

REACTIONS (9)
  - Malignant neoplasm progression [Recovering/Resolving]
  - Pyrexia [Unknown]
  - Leukopenia [Recovered/Resolved]
  - Therapy partial responder [Unknown]
  - C-reactive protein increased [Unknown]
  - Neutropenia [Recovered/Resolved]
  - Hepatotoxicity [Recovered/Resolved]
  - Thrombocytopenia [Recovered/Resolved]
  - Condition aggravated [Unknown]

NARRATIVE: CASE EVENT DATE: 201602
